FAERS Safety Report 17587248 (Version 1)
Quarter: 2020Q1

REPORT INFORMATION
  Report Type: Spontaneous
  Country: US (occurrence: US)
  Receive Date: 20200326
  Receipt Date: 20200326
  Transmission Date: 20200409
  Serious: No
  Sender: FDA-Public Use
  Company Number: US-GRANULES INDIA LIMITED-2082009

PATIENT
  Age: 64 Year
  Sex: Female

DRUGS (1)
  1. FEXOFENADINE HCL 180MG TABLET [Suspect]
     Active Substance: FEXOFENADINE HYDROCHLORIDE
     Indication: SINUSITIS
     Route: 048

REACTIONS (1)
  - Abdominal pain upper [Recovered/Resolved]
